FAERS Safety Report 6671542-3 (Version None)
Quarter: 2010Q2

REPORT INFORMATION
  Report Type: 
  Country: None (occurrence: None)
  Receive Date: 20100407
  Receipt Date: 20100331
  Transmission Date: 20101027
  Serious: Yes (Death, Hospitalization)
  Sender: FDA-Public Use
  Company Number: GB-BRISTOL-MYERS SQUIBB COMPANY-14648083

PATIENT
  Age: 69 Year
  Sex: Male

DRUGS (12)
  1. METFORMIN HCL [Suspect]
     Indication: DIABETES MELLITUS
     Route: 048
     Dates: start: 20090201, end: 20090512
  2. QUETIAPINE [Suspect]
     Dates: end: 20090511
  3. FRUSEMIDE [Suspect]
     Route: 048
  4. RAMIPRIL [Suspect]
     Route: 048
     Dates: end: 20090501
  5. SPIRONOLACTONE [Suspect]
     Route: 048
     Dates: end: 20090430
  6. ASPIRIN [Concomitant]
     Route: 048
  7. FERROUS SULFATE TAB [Concomitant]
     Route: 048
  8. SIMVASTATIN [Concomitant]
     Route: 048
  9. DOCUSATE [Concomitant]
  10. GLICLAZIDE [Concomitant]
     Dates: start: 20090401, end: 20090428
  11. PARACETAMOL [Concomitant]
  12. REPAGLINIDE [Concomitant]
     Dates: start: 20090401

REACTIONS (6)
  - ACIDOSIS [None]
  - BLOOD GLUCOSE INCREASED [None]
  - BLOOD LACTIC ACID INCREASED [None]
  - BODY TEMPERATURE DECREASED [None]
  - LEFT VENTRICULAR FAILURE [None]
  - RENAL FAILURE ACUTE [None]
